FAERS Safety Report 25113064 (Version 5)
Quarter: 2025Q2

REPORT INFORMATION
  Report Type: Spontaneous
  Country: US (occurrence: US)
  Receive Date: 20250324
  Receipt Date: 20250626
  Transmission Date: 20250716
  Serious: Yes (Hospitalization, Other)
  Sender: PFIZER
  Company Number: US-PFIZER INC-PV202300207343

PATIENT
  Age: 68 Year
  Sex: Female
  Weight: 132.45 kg

DRUGS (9)
  1. LORBRENA [Suspect]
     Active Substance: LORLATINIB
     Indication: Lung neoplasm malignant
     Dosage: TAKE 3 TABLETS (75 MG TOTAL) IN THE MORNING
     Route: 048
     Dates: start: 2023
  2. LORBRENA [Suspect]
     Active Substance: LORLATINIB
     Dosage: TAKE 2 TABLETS (50 MG TOTAL) DAILY
     Route: 048
  3. LORBRENA [Suspect]
     Active Substance: LORLATINIB
     Dosage: ALTERNATING WITH 50 MG (2 PILLS) AND 25 MG (ONE) EVERY DAY, ^ONE TWO, ONE TWO^
     Route: 048
     Dates: end: 20250303
  4. LORBRENA [Suspect]
     Active Substance: LORLATINIB
     Dosage: TAKE 2 TABLETS (50 MG TOTAL) BY MOUTH DAILY
     Route: 048
  5. LORBRENA [Suspect]
     Active Substance: LORLATINIB
     Dates: start: 202305, end: 20250512
  6. VITAMIN C [Concomitant]
     Active Substance: ASCORBIC ACID
  7. CALCIUM [Concomitant]
     Active Substance: CALCIUM
  8. MAGNESIUM [Concomitant]
     Active Substance: MAGNESIUM
  9. VITAMIN D NOS [Concomitant]
     Active Substance: CHOLECALCIFEROL\ERGOCALCIFEROL

REACTIONS (13)
  - Hallucination [Unknown]
  - Haemoptysis [Unknown]
  - Lung neoplasm malignant [Unknown]
  - Malignant neoplasm progression [Unknown]
  - Paranoia [Recovering/Resolving]
  - Feeling abnormal [Recovered/Resolved]
  - Memory impairment [Unknown]
  - Oedema peripheral [Recovering/Resolving]
  - Vomiting [Unknown]
  - Diarrhoea [Unknown]
  - Nausea [Unknown]
  - Weight increased [Unknown]
  - Off label use [Unknown]
